FAERS Safety Report 18818347 (Version 3)
Quarter: 2021Q1

REPORT INFORMATION
  Report Type: Spontaneous
  Country: JP (occurrence: JP)
  Receive Date: 20210201
  Receipt Date: 20210219
  Transmission Date: 20210419
  Serious: Yes (Death)
  Sender: FDA-Public Use
  Company Number: NVSJ2021JP001716

PATIENT
  Age: 93 Year
  Sex: Female

DRUGS (1)
  1. ENTRESTO [Suspect]
     Active Substance: SACUBITRIL\VALSARTAN
     Indication: CARDIAC FAILURE CHRONIC
     Dosage: 100 MG
     Route: 048
     Dates: start: 20200930, end: 20201220

REACTIONS (3)
  - Concomitant disease aggravated [Fatal]
  - Aortic valve disease mixed [Fatal]
  - Mitral valve incompetence [Fatal]
